FAERS Safety Report 4846896-0 (Version None)
Quarter: 2005Q4

REPORT INFORMATION
  Report Type: 
  Country: None (occurrence: None)
  Receive Date: 20051202
  Receipt Date: 20051121
  Transmission Date: 20060501
  Serious: Yes (Hospitalization, Other)
  Sender: FDA-Public Use
  Company Number: 2005156831

PATIENT
  Age: 55 Year
  Sex: Female

DRUGS (1)
  1. ZELDOX (CAPSULES)  (ZIPRASIDONE) [Suspect]
     Indication: SCHIZOPHRENIA
     Dosage: 120 MG (60 MG, 2 IN 1 D) ORAL
     Route: 048
     Dates: start: 20040101, end: 20050101

REACTIONS (3)
  - COMA [None]
  - DRUG ABUSER [None]
  - STATUS EPILEPTICUS [None]
